FAERS Safety Report 24528631 (Version 1)
Quarter: 2024Q4

REPORT INFORMATION
  Report Type: Spontaneous
  Country: US (occurrence: US)
  Receive Date: 20241021
  Receipt Date: 20241021
  Transmission Date: 20250114
  Serious: Yes (Hospitalization, Other)
  Sender: EPIC PHARM
  Company Number: US-EPICPHARMA-US-2024EPCLIT01259

PATIENT
  Age: 62 Year
  Sex: Male

DRUGS (5)
  1. CEFTRIAXONE SODIUM [Suspect]
     Active Substance: CEFTRIAXONE SODIUM
     Indication: Fusobacterium infection
     Route: 042
  2. METRONIDAZOLE [Suspect]
     Active Substance: METRONIDAZOLE
     Indication: Fusobacterium infection
     Route: 048
  3. VANCOMYCIN [Suspect]
     Active Substance: VANCOMYCIN
     Indication: Fusobacterium infection
     Route: 065
  4. RIVAROXABAN [Concomitant]
     Active Substance: RIVAROXABAN
     Indication: Atrial fibrillation
     Route: 065
  5. LEVETIRACETAM [Concomitant]
     Active Substance: LEVETIRACETAM
     Indication: Seizure prophylaxis
     Route: 065

REACTIONS (4)
  - Drug-induced liver injury [Recovering/Resolving]
  - Drug reaction with eosinophilia and systemic symptoms [Recovering/Resolving]
  - Acute kidney injury [Recovering/Resolving]
  - Product use in unapproved indication [Unknown]
